FAERS Safety Report 9609050 (Version 1)
Quarter: 2013Q4

REPORT INFORMATION
  Report Type: Spontaneous
  Country: AU (occurrence: US)
  Receive Date: 20131009
  Receipt Date: 20131009
  Transmission Date: 20140711
  Serious: No
  Sender: FDA-Public Use
  Company Number: AU-PURDUE-USA-2012-0094481

PATIENT
  Age: 85 Year
  Sex: Female

DRUGS (1)
  1. NORSPAN (NDA 21-306) [Suspect]
     Indication: PRODUCT USED FOR UNKNOWN INDICATION
     Dosage: 5 MCG/HR, UNK
     Route: 062
     Dates: start: 2012

REACTIONS (1)
  - Application site erythema [Unknown]
